FAERS Safety Report 8362348-8 (Version None)
Quarter: 2012Q2

REPORT INFORMATION
  Report Type: 
  Country: None (occurrence: None)
  Receive Date: 20120516
  Receipt Date: 20120504
  Transmission Date: 20120825
  Serious: Yes (Hospitalization)
  Sender: FDA-Public Use
  Company Number: US-BIOGENIDEC-2012BI012156

PATIENT
  Age: 62 Year
  Sex: Female

DRUGS (1)
  1. TYSABRI [Suspect]
     Indication: MULTIPLE SCLEROSIS
     Route: 042
     Dates: start: 20120109

REACTIONS (7)
  - JOINT SWELLING [None]
  - OEDEMA PERIPHERAL [None]
  - PRESYNCOPE [None]
  - HYPOTENSION [None]
  - FATIGUE [None]
  - INFUSION RELATED REACTION [None]
  - URINARY TRACT INFECTION [None]
